FAERS Safety Report 10097225 (Version 2)
Quarter: 2014Q2

REPORT INFORMATION
  Report Type: Report from Study
  Country: MY (occurrence: MY)
  Receive Date: 20140422
  Receipt Date: 20140528
  Transmission Date: 20141212
  Serious: Yes (Hospitalization, Other)
  Sender: FDA-Public Use
  Company Number: PHHY2014MY048550

PATIENT
  Sex: Male

DRUGS (2)
  1. GLIVEC [Suspect]
     Indication: CHRONIC MYELOID LEUKAEMIA
     Dosage: 400 MG
  2. HYDROXYUREA [Concomitant]
     Dosage: UNK UKN, UNK

REACTIONS (3)
  - Blood count abnormal [Unknown]
  - Diabetic blindness [Unknown]
  - Drug resistance [Unknown]
